FAERS Safety Report 5218019-X (Version None)
Quarter: 2007Q1

REPORT INFORMATION
  Report Type: 
  Country: None (occurrence: None)
  Receive Date: 20061130
  Receipt Date: 20060807
  Transmission Date: 20070707
  Serious: Yes (Other)
  Sender: FDA-Public Use
  Company Number: US200607001212

PATIENT
  Age: 60 Year
  Sex: Female
  Weight: 85.3 kg

DRUGS (4)
  1. ZYPREXA [Suspect]
     Indication: DEPRESSION
     Dosage: MG, ORAL
     Route: 048
     Dates: start: 20040501, end: 20060215
  2. LITHIUM CARBONATE [Concomitant]
  3. WELLBUTRIN (BUROPION HYDROCHLORIDE) [Concomitant]
  4. EFFEXOR [Concomitant]

REACTIONS (3)
  - BLOOD CHOLESTEROL ABNORMAL [None]
  - DIABETES MELLITUS [None]
  - OBESITY [None]
